FAERS Safety Report 7444382-5 (Version None)
Quarter: 2011Q2

REPORT INFORMATION
  Report Type: 
  Country: None (occurrence: None)
  Receive Date: 20110429
  Receipt Date: 20110211
  Transmission Date: 20111010
  Serious: Yes (Hospitalization)
  Sender: FDA-Public Use
  Company Number: GB-BAYER-2011-018708

PATIENT
  Age: 83 Year
  Sex: Male

DRUGS (7)
  1. SORAFENIB (RAF KINASE INHIBITOR) [Suspect]
     Indication: RENAL CELL CARCINOMA
     Dosage: 400 MG, UNK
     Dates: start: 20110128, end: 20110101
  2. DIGOXIN [Concomitant]
     Dosage: 250 MG, UNK
     Route: 048
     Dates: start: 20080101
  3. WARFARIN SODIUM [Concomitant]
     Dosage: UNK
     Route: 048
     Dates: start: 20080101
  4. LISINOPRIL [Concomitant]
     Dosage: 5 MG, UNK
     Route: 048
     Dates: start: 20080101
  5. BISOPROLOL [Concomitant]
     Dosage: 5 MG, UNK
     Route: 048
     Dates: start: 20080101
  6. FUROSEMIDE [Concomitant]
     Dosage: 40 MG, UNK
     Route: 048
     Dates: start: 20080101
  7. ALLOPURINOL [Concomitant]
     Dosage: 300 MG, UNK
     Route: 048
     Dates: start: 20080101

REACTIONS (3)
  - CONFUSIONAL STATE [None]
  - URINARY INCONTINENCE [None]
  - PERIPHERAL MOTOR NEUROPATHY [None]
